FAERS Safety Report 14652704 (Version 4)
Quarter: 2020Q1

REPORT INFORMATION
  Report Type: Spontaneous
  Country: US (occurrence: US)
  Receive Date: 20180319
  Receipt Date: 20200306
  Transmission Date: 20200409
  Serious: Yes (Hospitalization, Other)
  Sender: FDA-Public Use
  Company Number: US-ASTRAZENECA-2018SE31987

PATIENT
  Age: 20754 Day
  Sex: Female
  Weight: 68 kg

DRUGS (86)
  1. OMEPRAZOLE. [Suspect]
     Active Substance: OMEPRAZOLE
     Indication: GASTROOESOPHAGEAL REFLUX DISEASE
     Route: 048
     Dates: start: 20110811
  2. BENADRYL [Concomitant]
     Active Substance: DIPHENHYDRAMINE HYDROCHLORIDE
     Indication: MULTIPLE ALLERGIES
     Route: 065
     Dates: start: 2017
  3. CIMETIDINE HYDROCHLORIDE. [Concomitant]
     Active Substance: CIMETIDINE HYDROCHLORIDE
     Route: 065
  4. PEPCID [Concomitant]
     Active Substance: FAMOTIDINE
     Dosage: PEPCID AC (OTC)
  5. NIZATIDINE. [Concomitant]
     Active Substance: NIZATIDINE
     Dosage: NIZATIDINE (GENERIC)
     Route: 065
  6. CYMBALTA [Concomitant]
     Active Substance: DULOXETINE HYDROCHLORIDE
     Route: 048
  7. MAGNESIUM HYDROXIDE. [Concomitant]
     Active Substance: MAGNESIUM HYDROXIDE
  8. PREDNISONE. [Concomitant]
     Active Substance: PREDNISONE
  9. CLINDAMYCIN. [Concomitant]
     Active Substance: CLINDAMYCIN
     Route: 065
     Dates: start: 20150207
  10. NEXIUM [Suspect]
     Active Substance: ESOMEPRAZOLE MAGNESIUM
     Indication: GASTROOESOPHAGEAL REFLUX DISEASE
     Route: 048
     Dates: start: 2011, end: 2016
  11. LEVOCETIRIZINE [Concomitant]
     Active Substance: LEVOCETIRIZINE
     Route: 048
     Dates: start: 20111208
  12. LIORESAL [Concomitant]
     Active Substance: BACLOFEN
     Route: 048
  13. CELECOXIB. [Concomitant]
     Active Substance: CELECOXIB
     Route: 048
     Dates: start: 20140814
  14. ESTRADIOL. [Concomitant]
     Active Substance: ESTRADIOL
     Dosage: APPLY 1 PATCH EXTERNALLY TO THE SKIN 2 TIMES A WEEK
     Dates: start: 20140820
  15. PSYLLIUM [Concomitant]
     Active Substance: PLANTAGO SEED
  16. MULTIVITAMIN [Concomitant]
     Active Substance: VITAMINS
  17. DEXOMETHASONE [Concomitant]
  18. PRAVASTATIN. [Concomitant]
     Active Substance: PRAVASTATIN
  19. ZOLPIDEM [Concomitant]
     Active Substance: ZOLPIDEM TARTRATE
  20. NEXIUM [Suspect]
     Active Substance: ESOMEPRAZOLE MAGNESIUM
     Indication: GASTROOESOPHAGEAL REFLUX DISEASE
     Route: 048
     Dates: start: 2014, end: 2015
  21. NEXIUM [Suspect]
     Active Substance: ESOMEPRAZOLE MAGNESIUM
     Indication: GASTROOESOPHAGEAL REFLUX DISEASE
     Route: 048
     Dates: start: 20140520
  22. PROTONIX [Suspect]
     Active Substance: PANTOPRAZOLE SODIUM
     Indication: GASTROOESOPHAGEAL REFLUX DISEASE
     Dosage: PANTOPRAZOLE (GENERIC)
     Route: 065
     Dates: start: 2017
  23. ZANTAC [Concomitant]
     Active Substance: RANITIDINE HYDROCHLORIDE
     Indication: GASTROOESOPHAGEAL REFLUX DISEASE
     Dosage: 150
     Route: 065
  24. TYLENOL [Concomitant]
     Active Substance: ACETAMINOPHEN
     Route: 048
  25. MIRTAZAPINE. [Concomitant]
     Active Substance: MIRTAZAPINE
     Route: 048
     Dates: start: 20131105
  26. ETODOLAC. [Concomitant]
     Active Substance: ETODOLAC
     Route: 048
     Dates: start: 20110811
  27. AZITHROMYCIN ANHYDROUS. [Concomitant]
     Active Substance: AZITHROMYCIN ANHYDROUS
     Dosage: TAKE 2 TABLETS BY MOUTH ON DAY 1, THEN TAKE TABLET BY MOUTH EVERY DAY FOR 4 DAYS
     Route: 048
     Dates: start: 20160926
  28. METOCLOPRAMIDE. [Concomitant]
     Active Substance: METOCLOPRAMIDE
     Route: 048
  29. VALSARTAN. [Concomitant]
     Active Substance: VALSARTAN
  30. TRILAFON [Concomitant]
     Active Substance: PERPHENAZINE
     Route: 065
  31. SERENTIL [Concomitant]
     Active Substance: MESORIDAZINE BESYLATE
     Route: 065
  32. AMARYL [Concomitant]
     Active Substance: GLIMEPIRIDE
  33. NEXIUM [Suspect]
     Active Substance: ESOMEPRAZOLE MAGNESIUM
     Indication: GASTROOESOPHAGEAL REFLUX DISEASE
     Route: 048
     Dates: start: 20070314
  34. OMEPRAZOLE. [Suspect]
     Active Substance: OMEPRAZOLE
     Indication: GASTROOESOPHAGEAL REFLUX DISEASE
     Route: 048
     Dates: start: 20081111
  35. OMEPRAZOLE. [Suspect]
     Active Substance: OMEPRAZOLE
     Indication: GASTROOESOPHAGEAL REFLUX DISEASE
     Route: 065
     Dates: start: 2011, end: 2014
  36. HYDROCODONE-ACETAMINOPHEN, HYDROCODONE BITARTRATE [Concomitant]
     Indication: PAIN
     Dosage: 10 MG-325 MG, QID
     Route: 048
  37. MAGNESIUM OXIDE. [Concomitant]
     Active Substance: MAGNESIUM OXIDE
     Route: 048
  38. TIZANIDINE. [Concomitant]
     Active Substance: TIZANIDINE
     Route: 048
     Dates: start: 20140122
  39. CEFACLOR. [Concomitant]
     Active Substance: CEFACLOR
     Route: 048
     Dates: start: 20140104
  40. PAROXETINE. [Concomitant]
     Active Substance: PAROXETINE
     Route: 048
     Dates: start: 20130408
  41. TOPIRAMATE. [Concomitant]
     Active Substance: TOPIRAMATE
  42. MEPERGAN [Concomitant]
     Active Substance: MEPERIDINE HYDROCHLORIDE\PROMETHAZINE HYDROCHLORIDE
     Route: 065
  43. THORAZINE [Concomitant]
     Active Substance: CHLORPROMAZINE
     Route: 065
  44. PROLIXINE [Concomitant]
     Route: 065
  45. NAVANE [Concomitant]
     Active Substance: THIOTHIXENE
     Route: 065
  46. HYDROXYZINE [Concomitant]
     Active Substance: HYDROXYZINE HYDROCHLORIDE
     Route: 048
  47. PEPCID [Concomitant]
     Active Substance: FAMOTIDINE
     Route: 065
  48. ZANTAC [Concomitant]
     Active Substance: RANITIDINE HYDROCHLORIDE
     Indication: GASTROOESOPHAGEAL REFLUX DISEASE
     Dosage: RANITIDINE (GENERIC)- TAKE 1 TABLET BY MOUTH EVERY NIGHT AT BEDTIME
     Route: 048
  49. TRAZODONE [Concomitant]
     Active Substance: TRAZODONE HYDROCHLORIDE
     Route: 048
  50. ZOFRAN [Concomitant]
     Active Substance: ONDANSETRON HYDROCHLORIDE
     Route: 048
  51. CYCLOBENZAPRINE. [Concomitant]
     Active Substance: CYCLOBENZAPRINE
     Indication: MUSCLE SPASMS
     Route: 048
     Dates: start: 20130823
  52. LEVOFLOXACIN. [Concomitant]
     Active Substance: LEVOFLOXACIN
     Route: 048
     Dates: start: 20150126
  53. RANITIDINE. [Concomitant]
     Active Substance: RANITIDINE
  54. VITAMIN C [Concomitant]
     Active Substance: ASCORBIC ACID
     Dosage: 100 IU
  55. RIVAROXABAN [Concomitant]
     Active Substance: RIVAROXABAN
  56. SPARINE [Concomitant]
     Active Substance: PROMAZINE HYDROCHLORIDE
     Route: 065
  57. STELAZINE [Concomitant]
     Active Substance: TRIFLUOPERAZINE HYDROCHLORIDE
     Route: 065
  58. NEXIUM [Suspect]
     Active Substance: ESOMEPRAZOLE MAGNESIUM
     Indication: GASTROOESOPHAGEAL REFLUX DISEASE
     Route: 048
     Dates: start: 20140520
  59. PEPCID [Concomitant]
     Active Substance: FAMOTIDINE
     Dosage: FAMOTIDINE (GENERIC)- 1 TABLET, BID
     Route: 048
     Dates: start: 20160807
  60. CARVEDILOL. [Concomitant]
     Active Substance: CARVEDILOL
     Route: 048
     Dates: start: 20160830
  61. GABAPENTIN. [Concomitant]
     Active Substance: GABAPENTIN
     Route: 048
     Dates: start: 20140314
  62. COZAAR [Concomitant]
     Active Substance: LOSARTAN POTASSIUM
     Route: 048
  63. ZOFRAN [Concomitant]
     Active Substance: ONDANSETRON HYDROCHLORIDE
     Route: 048
     Dates: start: 20150602
  64. METFORMIN [Concomitant]
     Active Substance: METFORMIN HYDROCHLORIDE
     Route: 048
     Dates: start: 20120522
  65. LOSARTAN. [Concomitant]
     Active Substance: LOSARTAN
  66. ATORVASTATIN [Concomitant]
     Active Substance: ATORVASTATIN
  67. MELLARIL [Concomitant]
     Active Substance: THIORIDAZINE HYDROCHLORIDE
     Route: 065
  68. NEXIUM [Suspect]
     Active Substance: ESOMEPRAZOLE MAGNESIUM
     Indication: GASTROOESOPHAGEAL REFLUX DISEASE
     Route: 048
     Dates: start: 20140814
  69. NEXIUM [Suspect]
     Active Substance: ESOMEPRAZOLE MAGNESIUM
     Indication: GASTROOESOPHAGEAL REFLUX DISEASE
     Route: 048
     Dates: start: 20140514
  70. HYDROXYZINE [Concomitant]
     Active Substance: HYDROXYZINE HYDROCHLORIDE
     Route: 065
  71. CIMETIDINE HYDROCHLORIDE. [Concomitant]
     Active Substance: CIMETIDINE HYDROCHLORIDE
     Dosage: CIMETIDINE (GENERIC)
  72. FAMOTIDINE, CALCIUM CARBONATE AND MEGNESIUM HYDROXIDE (OTC) [Concomitant]
     Route: 065
  73. HYDROCODONE-ACETAMINOPHEN, HYDROCODONE BITARTRATE [Concomitant]
     Indication: PAIN
     Route: 048
  74. CYMBALTA [Concomitant]
     Active Substance: DULOXETINE HYDROCHLORIDE
     Route: 048
     Dates: start: 20130408
  75. SIMVASTATIN. [Concomitant]
     Active Substance: SIMVASTATIN
  76. PERMITIL [Concomitant]
     Active Substance: FLUPHENAZINE HYDROCHLORIDE
     Route: 065
  77. COMPAZINE [Concomitant]
     Active Substance: PROCHLORPERAZINE MALEATE
     Route: 065
  78. PROTONIX [Suspect]
     Active Substance: PANTOPRAZOLE SODIUM
     Indication: GASTROOESOPHAGEAL REFLUX DISEASE
     Route: 065
     Dates: start: 2016
  79. CARISOPRODOL. [Concomitant]
     Active Substance: CARISOPRODOL
     Indication: MUSCLE SPASMS
     Route: 048
  80. HYDROCODONE-ACETAMINOPHEN, HYDROCODONE BITARTRATE [Concomitant]
     Indication: PAIN
     Dosage: HYDROCODONE /ACETAMINOPHEN 10- 500-I TABLET THREE TIMES A DAY
     Route: 048
     Dates: start: 20130624
  81. ABILIFY [Concomitant]
     Active Substance: ARIPIPRAZOLE
     Route: 048
  82. FLUCONAZOLE. [Concomitant]
     Active Substance: FLUCONAZOLE
     Route: 048
     Dates: start: 20150212
  83. LISINOPRIL. [Concomitant]
     Active Substance: LISINOPRIL
     Route: 048
     Dates: start: 20160513
  84. FAMOTIDINE. [Concomitant]
     Active Substance: FAMOTIDINE
  85. PHENERGAN [Concomitant]
     Active Substance: PROMETHAZINE HYDROCHLORIDE
     Route: 065
  86. TRULICITY [Concomitant]
     Active Substance: DULAGLUTIDE

REACTIONS (5)
  - Gastrooesophageal reflux disease [Unknown]
  - Chronic kidney disease [Not Recovered/Not Resolved]
  - Depression [Unknown]
  - Acute kidney injury [Not Recovered/Not Resolved]
  - Renal failure [Unknown]

NARRATIVE: CASE EVENT DATE: 20160225
